FAERS Safety Report 7430888-1 (Version None)
Quarter: 2011Q2

REPORT INFORMATION
  Report Type: 
  Country: None (occurrence: None)
  Receive Date: 20110419
  Receipt Date: 20110419
  Transmission Date: 20111010
  Serious: No
  Sender: FDA-Public Use
  Company Number: None

PATIENT
  Age: 83 Year
  Sex: Male

DRUGS (1)
  1. CIPROFLOXACIN TABS 5312 - 500MG [Suspect]
     Indication: PNEUMONIA
     Dosage: TAKE 1 TABLET TWICE A DAY 10 DAYS OF EACH MONTH

REACTIONS (2)
  - LIGAMENT RUPTURE [None]
  - ROTATOR CUFF SYNDROME [None]
